FAERS Safety Report 5830243-1 (Version None)
Quarter: 2008Q3

REPORT INFORMATION
  Report Type: 
  Country: None (occurrence: None)
  Receive Date: 20080801
  Receipt Date: 20080725
  Transmission Date: 20090109
  Serious: Yes (Other)
  Sender: FDA-Public Use
  Company Number: B0530565A

PATIENT
  Sex: Male

DRUGS (6)
  1. SEREVENT [Suspect]
     Indication: ASTHMA
     Dosage: 2PUFF TWICE PER DAY
     Route: 055
  2. BISOPROLOL FUMARATE [Concomitant]
     Route: 065
  3. AMIODARONE [Concomitant]
     Route: 065
  4. LOSARTAN POTASSIUM [Concomitant]
     Route: 065
  5. VENTOLIN [Concomitant]
  6. STEROID [Concomitant]
     Route: 065

REACTIONS (7)
  - ARRHYTHMIA [None]
  - ASTHMA [None]
  - COUGH [None]
  - DYSPNOEA [None]
  - HEART RATE INCREASED [None]
  - LETHARGY [None]
  - MYOCARDIAL INFARCTION [None]
